FAERS Safety Report 5564588-X (Version None)
Quarter: 2007Q4

REPORT INFORMATION
  Report Type: 
  Country: None (occurrence: None)
  Receive Date: 20071218
  Receipt Date: 20071208
  Transmission Date: 20080405
  Serious: Yes (Hospitalization, Other)
  Sender: FDA-Public Use
  Company Number: US-AMGEN-QUU256017

PATIENT
  Sex: Female

DRUGS (2)
  1. NEUPOGEN [Suspect]
     Indication: DRUG USE FOR UNKNOWN INDICATION
     Dates: start: 20070201
  2. PROCRIT [Suspect]
     Indication: ANAEMIA

REACTIONS (12)
  - BACK PAIN [None]
  - CONFUSIONAL STATE [None]
  - CONVULSION [None]
  - DELIRIUM [None]
  - FALL [None]
  - HALLUCINATION [None]
  - LOSS OF CONSCIOUSNESS [None]
  - MALAISE [None]
  - MUSCULOSKELETAL PAIN [None]
  - OEDEMA [None]
  - OVERDOSE [None]
  - PAIN [None]
